FAERS Safety Report 9993408 (Version 1)
Quarter: 2014Q1

REPORT INFORMATION
  Report Type: Spontaneous
  Country: US (occurrence: US)
  Receive Date: 20140310
  Receipt Date: 20140310
  Transmission Date: 20141002
  Serious: Yes (Hospitalization)
  Sender: FDA-Public Use
  Company Number: US-MYLANLABS-2014S1004683

PATIENT
  Sex: Female

DRUGS (8)
  1. NIFEDIPINE EXTENDED-RELEASE TABLETS, USP [Suspect]
     Indication: BLOOD PRESSURE INCREASED
     Route: 048
  2. ZESTRIL [Concomitant]
     Indication: BLOOD PRESSURE INCREASED
  3. PRAVASTATIN [Concomitant]
     Indication: BLOOD CHOLESTEROL INCREASED
  4. XANAX [Concomitant]
  5. CLARITIN /00917501/ [Concomitant]
  6. DYAZIDE [Concomitant]
  7. RANITIDINE [Concomitant]
  8. NEXIUM [Concomitant]

REACTIONS (4)
  - Dehydration [Recovered/Resolved]
  - Constipation [Not Recovered/Not Resolved]
  - Painful defaecation [Not Recovered/Not Resolved]
  - Medication residue present [Not Recovered/Not Resolved]
